FAERS Safety Report 22010040 (Version 1)
Quarter: 2023Q1

REPORT INFORMATION
  Report Type: Spontaneous
  Country: FR (occurrence: FR)
  Receive Date: 20230220
  Receipt Date: 20230220
  Transmission Date: 20230418
  Serious: Yes (Other)
  Sender: FDA-Public Use
  Company Number: None

PATIENT
  Age: 10 Year
  Sex: Female

DRUGS (3)
  1. MEKINIST [Suspect]
     Active Substance: TRAMETINIB DIMETHYL SULFOXIDE
     Indication: Astrocytoma, low grade
     Dosage: UNK
     Route: 065
     Dates: end: 202103
  2. TAFINLAR [Suspect]
     Active Substance: DABRAFENIB MESYLATE
     Indication: Astrocytoma, low grade
     Dosage: UNK
     Route: 065
     Dates: end: 202103
  3. AVASTIN [Suspect]
     Active Substance: BEVACIZUMAB
     Indication: Astrocytoma, low grade
     Dosage: UNK
     Route: 065
     Dates: end: 202103

REACTIONS (2)
  - Nodular fasciitis [Not Recovered/Not Resolved]
  - Arthralgia [Recovered/Resolved]

NARRATIVE: CASE EVENT DATE: 20210301
